FAERS Safety Report 18378266 (Version 2)
Quarter: 2021Q2

REPORT INFORMATION
  Report Type: Spontaneous
  Country: US (occurrence: US)
  Receive Date: 20201013
  Receipt Date: 20210401
  Transmission Date: 20210717
  Serious: Yes (Death, Hospitalization, Other)
  Sender: FDA-Public Use
  Company Number: US-PURDUE-USA-2020-0169004

PATIENT
  Age: 42 Year
  Sex: Male

DRUGS (2)
  1. HYDROMORPHONE TABLET (RHODES) [Suspect]
     Active Substance: HYDROMORPHONE
     Indication: PAIN
     Dosage: UNK
     Route: 048
  2. OXYCONTIN [Suspect]
     Active Substance: OXYCODONE HYDROCHLORIDE
     Indication: PAIN
     Dosage: UNK
     Route: 048

REACTIONS (16)
  - Oedema [Unknown]
  - Dependence on respirator [Unknown]
  - Thrombosis [Unknown]
  - Pneumonia [Unknown]
  - Cardiac failure congestive [Fatal]
  - Pulmonary embolism [Fatal]
  - Drug dependence [Unknown]
  - Swelling [Unknown]
  - Drug abuse [Unknown]
  - Hospitalisation [Unknown]
  - Cardiac ventricular thrombosis [Unknown]
  - Cardiac disorder [Unknown]
  - Pulmonary hypertension [Unknown]
  - Peripheral swelling [Unknown]
  - Overdose [Fatal]
  - Carotid artery thrombosis [Unknown]

NARRATIVE: CASE EVENT DATE: 2018
